FAERS Safety Report 8954772 (Version 1)
Quarter: 2012Q4

REPORT INFORMATION
  Report Type: Report from Study
  Country: DE (occurrence: DE)
  Receive Date: 20121207
  Receipt Date: 20121207
  Transmission Date: 20130627
  Serious: Yes (Hospitalization, Other)
  Sender: FDA-Public Use
  Company Number: DE-GLAXOSMITHKLINE-B0849424A

PATIENT
  Age: 62 Year
  Sex: Female
  Weight: 72 kg

DRUGS (2)
  1. PAZOPANIB [Suspect]
     Indication: SARCOMA
     Dosage: 600MG Per day
     Route: 048
     Dates: start: 20121010, end: 20121128
  2. GEMCITABINE [Suspect]
     Indication: SARCOMA
     Dosage: 1000MGM2 Cyclic
     Route: 042
     Dates: start: 20121010

REACTIONS (2)
  - Hepatotoxicity [Not Recovered/Not Resolved]
  - Eye haemorrhage [Not Recovered/Not Resolved]
